FAERS Safety Report 7777591-6 (Version None)
Quarter: 2011Q3

REPORT INFORMATION
  Report Type: 
  Country: None (occurrence: None)
  Receive Date: 20110926
  Receipt Date: 20110915
  Transmission Date: 20111222
  Serious: No
  Sender: FDA-Public Use
  Company Number: US-MUTUAL PHARMACEUTICAL COMPANY, INC.-QLQN20110012

PATIENT
  Sex: Female
  Weight: 53.118 kg

DRUGS (10)
  1. QUALAQUIN [Suspect]
     Indication: MUSCLE SPASMS
     Route: 048
  2. REQUIP [Concomitant]
     Indication: PARKINSON'S DISEASE
     Route: 048
  3. PRAVASTATIN [Concomitant]
     Indication: PRODUCT USED FOR UNKNOWN INDICATION
     Route: 048
  4. PANTOPRAZOLE [Concomitant]
     Indication: PRODUCT USED FOR UNKNOWN INDICATION
     Route: 048
  5. LOSARTAN/HCTZ 100 MG/12.5MG [Concomitant]
     Indication: PRODUCT USED FOR UNKNOWN INDICATION
     Route: 048
  6. FERROUS SULFATE TAB [Concomitant]
     Indication: MINERAL SUPPLEMENTATION
     Route: 048
  7. FUROSEMIDE [Concomitant]
     Indication: PRODUCT USED FOR UNKNOWN INDICATION
     Route: 048
  8. AMLODIPINE/BENAZEPRIL 10 MG/20 MG [Concomitant]
     Indication: PRODUCT USED FOR UNKNOWN INDICATION
     Route: 048
  9. COUMADIN [Concomitant]
     Indication: THROMBOSIS PROPHYLAXIS
     Route: 048
  10. HUMALOG MIX 75/25 [Concomitant]
     Indication: DIABETES MELLITUS
     Route: 058

REACTIONS (3)
  - OFF LABEL USE [None]
  - PRURITUS GENERALISED [None]
  - PURPURA [None]
